FAERS Safety Report 9068871 (Version 1)
Quarter: 2013Q1

REPORT INFORMATION
  Report Type: Spontaneous
  Country: FR (occurrence: FR)
  Receive Date: 20130128
  Receipt Date: 20130128
  Transmission Date: 20140127
  Serious: Yes (Other)
  Sender: FDA-Public Use
  Company Number: FR-JNJFOC-20130113370

PATIENT
  Age: 72 Year
  Sex: Female

DRUGS (7)
  1. XARELTO [Suspect]
     Indication: KNEE ARTHROPLASTY
     Route: 048
     Dates: start: 20121122, end: 20121123
  2. XARELTO [Suspect]
     Indication: THROMBOSIS PROPHYLAXIS
     Route: 048
     Dates: start: 20121122, end: 20121123
  3. LOVENOX [Suspect]
     Indication: THROMBOSIS PROPHYLAXIS
     Route: 058
     Dates: start: 20121122, end: 20121122
  4. LEVOTHYROX [Concomitant]
     Route: 048
  5. EUPANTOL [Concomitant]
     Route: 048
     Dates: start: 20121122
  6. IVOR [Concomitant]
     Route: 065
  7. CEFAZOLINE [Concomitant]
     Route: 042
     Dates: start: 20121122, end: 20121122

REACTIONS (2)
  - Deep vein thrombosis [Recovering/Resolving]
  - Drug ineffective [Unknown]
